FAERS Safety Report 4928009-X (Version None)
Quarter: 2006Q1

REPORT INFORMATION
  Report Type: 
  Country: None (occurrence: None)
  Receive Date: 20060127
  Receipt Date: 20051223
  Transmission Date: 20060701
  Serious: Yes (Other)
  Sender: FDA-Public Use
  Company Number: 2006000771

PATIENT
  Age: 49 Year
  Sex: Male

DRUGS (3)
  1. LYRICA [Suspect]
     Indication: NEUROPATHY
     Dosage: 225 MG (75 MG, 3 IN 1 D), ORAL
     Route: 048
     Dates: start: 20051201, end: 20051220
  2. METHADONE HCL [Concomitant]
  3. KETAMINE (KETAMINE) [Concomitant]

REACTIONS (3)
  - ANAL DISCOMFORT [None]
  - RASH [None]
  - WOUND SECRETION [None]
